FAERS Safety Report 8182796-9 (Version None)
Quarter: 2012Q1

REPORT INFORMATION
  Report Type: 
  Country: None (occurrence: None)
  Receive Date: 20120305
  Receipt Date: 20120224
  Transmission Date: 20120608
  Serious: Yes (Other)
  Sender: FDA-Public Use
  Company Number: US-BAYER-2011-105666

PATIENT
  Age: 32 Year
  Sex: Female
  Weight: 66 kg

DRUGS (5)
  1. VALTREX [Concomitant]
  2. PRILOSEC [Concomitant]
  3. YASMIN [Suspect]
     Dosage: UNK
     Dates: start: 20080101, end: 20111001
  4. EPIDRIN [Concomitant]
  5. ORTHO CYCLEN-28 [Concomitant]

REACTIONS (7)
  - ABDOMINAL PAIN [None]
  - EMOTIONAL DISTRESS [None]
  - PAIN [None]
  - CHOLECYSTITIS CHRONIC [None]
  - INJURY [None]
  - ANXIETY [None]
  - CHOLELITHIASIS [None]
